FAERS Safety Report 25115615 (Version 5)
Quarter: 2025Q3

REPORT INFORMATION
  Report Type: Spontaneous
  Country: CA (occurrence: CA)
  Receive Date: 20250325
  Receipt Date: 20250825
  Transmission Date: 20251020
  Serious: Yes (Death, Other)
  Sender: Haleon PLC
  Company Number: CA-002147023-NVSC2025CA046203

PATIENT
  Sex: Female

DRUGS (179)
  1. DICLOFENAC [Suspect]
     Active Substance: DICLOFENAC
     Indication: Product used for unknown indication
  2. DICLOFENAC [Suspect]
     Active Substance: DICLOFENAC
  3. DICLOFENAC [Suspect]
     Active Substance: DICLOFENAC
  4. QUETIAPINE FUMARATE [Suspect]
     Active Substance: QUETIAPINE FUMARATE
     Indication: Product used for unknown indication
  5. DICLOFENAC POTASSIUM [Suspect]
     Active Substance: DICLOFENAC POTASSIUM
     Indication: Product used for unknown indication
  6. DICLOFENAC POTASSIUM [Suspect]
     Active Substance: DICLOFENAC POTASSIUM
  7. DICLOFENAC POTASSIUM [Suspect]
     Active Substance: DICLOFENAC POTASSIUM
  8. VOLTAREN ARTHRITIS PAIN [Suspect]
     Active Substance: DICLOFENAC SODIUM
     Indication: Product used for unknown indication
  9. VOLTAREN ARTHRITIS PAIN [Suspect]
     Active Substance: DICLOFENAC SODIUM
  10. VOLTAREN ARTHRITIS PAIN [Suspect]
     Active Substance: DICLOFENAC SODIUM
  11. ROBAXACET [Suspect]
     Active Substance: ACETAMINOPHEN\METHOCARBAMOL
     Indication: Product used for unknown indication
  12. ROBAXACET [Suspect]
     Active Substance: ACETAMINOPHEN\METHOCARBAMOL
  13. MESALAMINE [Suspect]
     Active Substance: MESALAMINE
     Indication: Product used for unknown indication
  14. MESALAMINE [Suspect]
     Active Substance: MESALAMINE
  15. THYMOL [Suspect]
     Active Substance: THYMOL
     Indication: Product used for unknown indication
     Route: 048
  16. THYMOL [Suspect]
     Active Substance: THYMOL
     Route: 048
  17. THYMOL [Suspect]
     Active Substance: THYMOL
  18. METHYLPREDNISOLONE SODIUM SUCCINATE [Suspect]
     Active Substance: METHYLPREDNISOLONE SODIUM SUCCINATE
     Indication: Product used for unknown indication
     Route: 048
  19. PREDNISONE [Suspect]
     Active Substance: PREDNISONE
     Indication: Product used for unknown indication
     Route: 048
  20. PREDNISONE [Suspect]
     Active Substance: PREDNISONE
     Route: 048
  21. PREDNISONE [Suspect]
     Active Substance: PREDNISONE
     Route: 048
  22. PREDNISONE [Suspect]
     Active Substance: PREDNISONE
  23. PREDNISONE [Suspect]
     Active Substance: PREDNISONE
  24. PREDNISONE [Suspect]
     Active Substance: PREDNISONE
     Route: 048
  25. PREDNISONE [Suspect]
     Active Substance: PREDNISONE
     Route: 048
  26. DICLOFENAC SODIUM [Suspect]
     Active Substance: DICLOFENAC SODIUM
     Indication: Product used for unknown indication
  27. DICLOFENAC SODIUM [Suspect]
     Active Substance: DICLOFENAC SODIUM
  28. DICLOFENAC SODIUM [Suspect]
     Active Substance: DICLOFENAC SODIUM
  29. DICLOFENAC SODIUM [Suspect]
     Active Substance: DICLOFENAC SODIUM
  30. DICLOFENAC SODIUM [Suspect]
     Active Substance: DICLOFENAC SODIUM
  31. DICLOFENAC SODIUM [Suspect]
     Active Substance: DICLOFENAC SODIUM
  32. DICLOFENAC SODIUM [Suspect]
     Active Substance: DICLOFENAC SODIUM
  33. DICLOFENAC SODIUM [Suspect]
     Active Substance: DICLOFENAC SODIUM
  34. DICLOFENAC SODIUM [Suspect]
     Active Substance: DICLOFENAC SODIUM
  35. DICLOFENAC SODIUM [Suspect]
     Active Substance: DICLOFENAC SODIUM
  36. DICLOFENAC SODIUM [Suspect]
     Active Substance: DICLOFENAC SODIUM
     Route: 058
  37. DICLOFENAC SODIUM [Suspect]
     Active Substance: DICLOFENAC SODIUM
  38. DICLOFENAC SODIUM [Suspect]
     Active Substance: DICLOFENAC SODIUM
  39. DICLOFENAC SODIUM [Suspect]
     Active Substance: DICLOFENAC SODIUM
  40. DICLOFENAC SODIUM [Suspect]
     Active Substance: DICLOFENAC SODIUM
     Dosage: 50 MG, QD, ROUTE - UNKNOWN
  41. DICLOFENAC SODIUM [Suspect]
     Active Substance: DICLOFENAC SODIUM
  42. DICLOFENAC SODIUM [Suspect]
     Active Substance: DICLOFENAC SODIUM
  43. DICLOFENAC SODIUM [Suspect]
     Active Substance: DICLOFENAC SODIUM
  44. DICLOFENAC SODIUM [Suspect]
     Active Substance: DICLOFENAC SODIUM
  45. DICLOFENAC SODIUM [Suspect]
     Active Substance: DICLOFENAC SODIUM
  46. DICLOFENAC SODIUM [Suspect]
     Active Substance: DICLOFENAC SODIUM
  47. DICLOFENAC SODIUM [Suspect]
     Active Substance: DICLOFENAC SODIUM
  48. DICLOFENAC SODIUM [Suspect]
     Active Substance: DICLOFENAC SODIUM
  49. TRAMADOL HYDROCHLORIDE [Suspect]
     Active Substance: TRAMADOL HYDROCHLORIDE
     Indication: Product used for unknown indication
  50. PSEUDOEPHEDRINE HYDROCHLORIDE [Suspect]
     Active Substance: PSEUDOEPHEDRINE HYDROCHLORIDE
     Indication: Product used for unknown indication
  51. SULFASALAZINE [Suspect]
     Active Substance: SULFASALAZINE
     Indication: Product used for unknown indication
     Route: 058
  52. SULFASALAZINE [Suspect]
     Active Substance: SULFASALAZINE
     Route: 058
  53. SULFASALAZINE [Suspect]
     Active Substance: SULFASALAZINE
     Dosage: 2000 MG, QD
     Route: 048
  54. SULFASALAZINE [Suspect]
     Active Substance: SULFASALAZINE
     Route: 058
  55. SULFASALAZINE [Suspect]
     Active Substance: SULFASALAZINE
     Route: 058
  56. SULFASALAZINE [Suspect]
     Active Substance: SULFASALAZINE
     Route: 058
  57. SULFASALAZINE [Suspect]
     Active Substance: SULFASALAZINE
     Route: 058
  58. SULFASALAZINE [Suspect]
     Active Substance: SULFASALAZINE
  59. MORPHINE SULFATE [Suspect]
     Active Substance: MORPHINE SULFATE
     Indication: Product used for unknown indication
  60. MORPHINE SULFATE [Suspect]
     Active Substance: MORPHINE SULFATE
  61. NITROFURAZONE [Suspect]
     Active Substance: NITROFURAZONE
     Indication: Product used for unknown indication
     Route: 048
  62. NITROFURAZONE [Suspect]
     Active Substance: NITROFURAZONE
     Route: 048
  63. NITROFURAZONE [Suspect]
     Active Substance: NITROFURAZONE
  64. QUETIAPINE FUMARATE [Suspect]
     Active Substance: QUETIAPINE FUMARATE
     Indication: Product used for unknown indication
  65. QUETIAPINE FUMARATE [Suspect]
     Active Substance: QUETIAPINE FUMARATE
  66. VITAMIN D3 [Suspect]
     Active Substance: CHOLECALCIFEROL
     Indication: Product used for unknown indication
  67. VITAMIN D3 [Suspect]
     Active Substance: CHOLECALCIFEROL
     Route: 058
  68. VITAMIN D3 [Suspect]
     Active Substance: CHOLECALCIFEROL
     Route: 016
  69. VITAMIN D3 [Suspect]
     Active Substance: CHOLECALCIFEROL
  70. VITAMIN D3 [Suspect]
     Active Substance: CHOLECALCIFEROL
  71. TYROTHRICIN [Suspect]
     Active Substance: TYROTHRICIN
     Indication: Product used for unknown indication
     Route: 048
  72. TYROTHRICIN [Suspect]
     Active Substance: TYROTHRICIN
     Route: 048
  73. TYROTHRICIN [Suspect]
     Active Substance: TYROTHRICIN
  74. SALICYLIC ACID [Suspect]
     Active Substance: SALICYLIC ACID
     Indication: Product used for unknown indication
  75. LYRICA [Suspect]
     Active Substance: PREGABALIN
     Indication: Product used for unknown indication
  76. LYRICA [Suspect]
     Active Substance: PREGABALIN
  77. OXYCODONE [Suspect]
     Active Substance: OXYCODONE
     Indication: Product used for unknown indication
  78. OXYCODONE [Suspect]
     Active Substance: OXYCODONE
  79. DIETARY SUPPLEMENT\HERBALS [Suspect]
     Active Substance: DIETARY SUPPLEMENT\HERBALS
     Indication: Product used for unknown indication
     Route: 048
  80. DIETARY SUPPLEMENT\HERBALS [Suspect]
     Active Substance: DIETARY SUPPLEMENT\HERBALS
  81. ORENCIA [Suspect]
     Active Substance: ABATACEPT
     Indication: Product used for unknown indication
     Dosage: 17.88 MG, QD, ROUTE: UNKNOWN
  82. ORENCIA [Suspect]
     Active Substance: ABATACEPT
     Route: 058
  83. ORENCIA [Suspect]
     Active Substance: ABATACEPT
     Dosage: 125 MG, QW
     Route: 058
  84. ORENCIA [Suspect]
     Active Substance: ABATACEPT
  85. ORENCIA [Suspect]
     Active Substance: ABATACEPT
     Route: 058
  86. ORENCIA [Suspect]
     Active Substance: ABATACEPT
     Route: 042
  87. ORENCIA [Suspect]
     Active Substance: ABATACEPT
     Route: 058
  88. ORENCIA [Suspect]
     Active Substance: ABATACEPT
  89. ORENCIA [Suspect]
     Active Substance: ABATACEPT
  90. ORENCIA [Suspect]
     Active Substance: ABATACEPT
     Route: 042
  91. ORENCIA [Suspect]
     Active Substance: ABATACEPT
  92. ORENCIA [Suspect]
     Active Substance: ABATACEPT
  93. ORENCIA [Suspect]
     Active Substance: ABATACEPT
  94. ORENCIA [Suspect]
     Active Substance: ABATACEPT
     Dosage: 18 MG, QD, ROUTE: UNKNOWN
  95. ORENCIA [Suspect]
     Active Substance: ABATACEPT
     Route: 053
  96. ORENCIA [Suspect]
     Active Substance: ABATACEPT
     Dosage: 17.86 MG, QD
     Route: 042
  97. TOFACITINIB CITRATE [Suspect]
     Active Substance: TOFACITINIB CITRATE
     Indication: Product used for unknown indication
     Dosage: 10 MG, QD, ROUTE: UNKNOWN
  98. XELJANZ [Suspect]
     Active Substance: TOFACITINIB CITRATE
     Indication: Product used for unknown indication
     Dosage: 5 MG, QD, ROUTE: UNKNOWN
  99. XELJANZ [Suspect]
     Active Substance: TOFACITINIB CITRATE
     Dosage: 10 MG, QD
     Route: 048
  100. OTEZLA [Suspect]
     Active Substance: APREMILAST
     Indication: Product used for unknown indication
     Dosage: 6 MG, QD, ROUTE: UNKNOWN
  101. OTEZLA [Suspect]
     Active Substance: APREMILAST
     Dosage: 6 MG, QD, ROUTE: UNKNOWN
  102. OTEZLA [Suspect]
     Active Substance: APREMILAST
     Route: 048
  103. OTEZLA [Suspect]
     Active Substance: APREMILAST
     Route: 048
  104. OTEZLA [Suspect]
     Active Substance: APREMILAST
  105. USTEKINUMAB [Suspect]
     Active Substance: USTEKINUMAB
     Indication: Product used for unknown indication
     Route: 042
  106. TRICLOSAN [Suspect]
     Active Substance: TRICLOSAN
     Indication: Product used for unknown indication
  107. TRICLOSAN [Suspect]
     Active Substance: TRICLOSAN
  108. PHTHALYLSULFATHIAZOLE [Suspect]
     Active Substance: PHTHALYLSULFATHIAZOLE
     Indication: Product used for unknown indication
     Dosage: 2000 MG, QD
     Route: 048
  109. PHTHALYLSULFATHIAZOLE [Suspect]
     Active Substance: PHTHALYLSULFATHIAZOLE
     Dosage: 2000 MG, QD
     Route: 048
  110. PHTHALYLSULFATHIAZOLE [Suspect]
     Active Substance: PHTHALYLSULFATHIAZOLE
     Route: 016
  111. PHTHALYLSULFATHIAZOLE [Suspect]
     Active Substance: PHTHALYLSULFATHIAZOLE
     Route: 048
  112. PHTHALYLSULFATHIAZOLE [Suspect]
     Active Substance: PHTHALYLSULFATHIAZOLE
     Dosage: 1000 MG, QD
     Route: 048
  113. PHTHALYLSULFATHIAZOLE [Suspect]
     Active Substance: PHTHALYLSULFATHIAZOLE
     Dosage: 2000 MG, QD
     Route: 058
  114. PHTHALYLSULFATHIAZOLE [Suspect]
     Active Substance: PHTHALYLSULFATHIAZOLE
  115. PHTHALYLSULFATHIAZOLE [Suspect]
     Active Substance: PHTHALYLSULFATHIAZOLE
     Dosage: 1000 MG, QD
     Route: 048
  116. PHTHALYLSULFATHIAZOLE [Suspect]
     Active Substance: PHTHALYLSULFATHIAZOLE
  117. METHOTREXATE [Suspect]
     Active Substance: METHOTREXATE
     Indication: Product used for unknown indication
     Route: 013
  118. METHOTREXATE [Suspect]
     Active Substance: METHOTREXATE
     Route: 013
  119. METHOTREXATE [Suspect]
     Active Substance: METHOTREXATE
     Route: 048
  120. METHOTREXATE [Suspect]
     Active Substance: METHOTREXATE
  121. METHOTREXATE [Suspect]
     Active Substance: METHOTREXATE
     Route: 048
  122. METHOTREXATE [Suspect]
     Active Substance: METHOTREXATE
     Route: 048
  123. METHOTREXATE [Suspect]
     Active Substance: METHOTREXATE
     Route: 048
  124. METHOTREXATE [Suspect]
     Active Substance: METHOTREXATE
  125. METHOTREXATE [Suspect]
     Active Substance: METHOTREXATE
     Dosage: 25 MG, QD
     Route: 048
  126. METHOTREXATE [Suspect]
     Active Substance: METHOTREXATE
     Route: 058
  127. METHOTREXATE [Suspect]
     Active Substance: METHOTREXATE
     Dosage: 20 MG, QD, ROUTE: UNKNOWN
  128. METHOTREXATE [Suspect]
     Active Substance: METHOTREXATE
     Dosage: 15 MG, QD
     Route: 048
  129. METHOTREXATE [Suspect]
     Active Substance: METHOTREXATE
     Route: 048
  130. METHOTREXATE [Suspect]
     Active Substance: METHOTREXATE
     Route: 048
  131. METHOTREXATE [Suspect]
     Active Substance: METHOTREXATE
  132. METHOTREXATE [Suspect]
     Active Substance: METHOTREXATE
     Route: 016
  133. METHOTREXATE [Suspect]
     Active Substance: METHOTREXATE
     Dosage: 20 MG, QD
     Route: 058
  134. NAPROXEN SODIUM [Suspect]
     Active Substance: NAPROXEN SODIUM
     Indication: Product used for unknown indication
     Dosage: 1000 MG, QD, ROUTE: UNKNOWN
  135. NAPROXEN SODIUM [Suspect]
     Active Substance: NAPROXEN SODIUM
     Dosage: 1000 MG, QD, ROUTE: UNKNOWN
  136. MYCOPHENOLATE MOFETIL [Suspect]
     Active Substance: MYCOPHENOLATE MOFETIL
     Indication: Product used for unknown indication
  137. MYCOPHENOLATE MOFETIL [Suspect]
     Active Substance: MYCOPHENOLATE MOFETIL
  138. TOCILIZUMAB [Suspect]
     Active Substance: TOCILIZUMAB
     Indication: Product used for unknown indication
     Route: 058
  139. TOCILIZUMAB [Suspect]
     Active Substance: TOCILIZUMAB
     Route: 058
  140. TOCILIZUMAB [Suspect]
     Active Substance: TOCILIZUMAB
     Route: 058
  141. TOCILIZUMAB [Suspect]
     Active Substance: TOCILIZUMAB
     Dosage: 752 MG, QW, ROUTE: UNKNOWN
  142. TOCILIZUMAB [Suspect]
     Active Substance: TOCILIZUMAB
     Route: 058
  143. TOCILIZUMAB [Suspect]
     Active Substance: TOCILIZUMAB
  144. TOCILIZUMAB [Suspect]
     Active Substance: TOCILIZUMAB
     Route: 016
  145. TOCILIZUMAB [Suspect]
     Active Substance: TOCILIZUMAB
     Route: 042
  146. TOCILIZUMAB [Suspect]
     Active Substance: TOCILIZUMAB
     Route: 042
  147. TOCILIZUMAB [Suspect]
     Active Substance: TOCILIZUMAB
     Route: 042
  148. TOCILIZUMAB [Suspect]
     Active Substance: TOCILIZUMAB
     Route: 048
  149. TOCILIZUMAB [Suspect]
     Active Substance: TOCILIZUMAB
  150. TOCILIZUMAB [Suspect]
     Active Substance: TOCILIZUMAB
     Route: 016
  151. TOCILIZUMAB [Suspect]
     Active Substance: TOCILIZUMAB
     Dosage: 2912.0 MG, QW
     Route: 042
  152. TOCILIZUMAB [Suspect]
     Active Substance: TOCILIZUMAB
     Route: 016
  153. AMINOSALICYLATE SODIUM [Suspect]
     Active Substance: AMINOSALICYLATE SODIUM
     Indication: Product used for unknown indication
  154. AMINOSALICYLATE SODIUM [Suspect]
     Active Substance: AMINOSALICYLATE SODIUM
  155. PREGABALIN [Suspect]
     Active Substance: PREGABALIN
     Indication: Product used for unknown indication
  156. TRIAMCINOLONE ACETONIDE [Suspect]
     Active Substance: TRIAMCINOLONE ACETONIDE
     Indication: Product used for unknown indication
  157. TRIAMCINOLONE ACETONIDE [Suspect]
     Active Substance: TRIAMCINOLONE ACETONIDE
     Route: 014
  158. SULFAMETHOXAZOLE\TRIMETHOPRIM [Suspect]
     Active Substance: SULFAMETHOXAZOLE\TRIMETHOPRIM
     Indication: Product used for unknown indication
     Route: 067
  159. SULFAMETHOXAZOLE\TRIMETHOPRIM [Suspect]
     Active Substance: SULFAMETHOXAZOLE\TRIMETHOPRIM
     Route: 067
  160. VITAMIN D3 [Suspect]
     Active Substance: CHOLECALCIFEROL
     Indication: Product used for unknown indication
  161. VITAMIN D3 [Suspect]
     Active Substance: CHOLECALCIFEROL
  162. VITAMIN D3 [Suspect]
     Active Substance: CHOLECALCIFEROL
  163. VITAMIN D3 [Suspect]
     Active Substance: CHOLECALCIFEROL
  164. VITAMIN D3 [Suspect]
     Active Substance: CHOLECALCIFEROL
     Route: 058
  165. VITAMIN D3 [Suspect]
     Active Substance: CHOLECALCIFEROL
  166. VITAMIN D3 [Suspect]
     Active Substance: CHOLECALCIFEROL
     Route: 016
  167. SULFAMETHOXAZOLE\TRIMETHOPRIM [Suspect]
     Active Substance: SULFAMETHOXAZOLE\TRIMETHOPRIM
     Indication: Product used for unknown indication
     Route: 067
  168. SULFAMETHOXAZOLE\TRIMETHOPRIM [Suspect]
     Active Substance: SULFAMETHOXAZOLE\TRIMETHOPRIM
     Route: 067
  169. DICLOFENAC SODIUM [Suspect]
     Active Substance: DICLOFENAC SODIUM
     Indication: Product used for unknown indication
  170. DICLOFENAC SODIUM [Suspect]
     Active Substance: DICLOFENAC SODIUM
  171. DICLOFENAC SODIUM [Suspect]
     Active Substance: DICLOFENAC SODIUM
  172. DICLOFENAC SODIUM [Suspect]
     Active Substance: DICLOFENAC SODIUM
  173. DICLOFENAC SODIUM [Suspect]
     Active Substance: DICLOFENAC SODIUM
  174. DICLOFENAC SODIUM [Suspect]
     Active Substance: DICLOFENAC SODIUM
  175. DICLOFENAC SODIUM [Suspect]
     Active Substance: DICLOFENAC SODIUM
  176. DICLOFENAC SODIUM [Suspect]
     Active Substance: DICLOFENAC SODIUM
  177. DICLOFENAC SODIUM [Suspect]
     Active Substance: DICLOFENAC SODIUM
  178. DICLOFENAC SODIUM [Suspect]
     Active Substance: DICLOFENAC SODIUM
  179. DICLOFENAC SODIUM [Suspect]
     Active Substance: DICLOFENAC SODIUM

REACTIONS (59)
  - Pulmonary fibrosis [Fatal]
  - Rheumatoid factor positive [Fatal]
  - Liver injury [Fatal]
  - Lower limb fracture [Fatal]
  - Upper respiratory tract infection [Fatal]
  - Rheumatoid arthritis [Fatal]
  - Joint dislocation [Fatal]
  - Irritable bowel syndrome [Fatal]
  - Nausea [Fatal]
  - Retinitis [Fatal]
  - Joint swelling [Fatal]
  - Pruritus [Fatal]
  - Prescribed underdose [Fatal]
  - Vomiting [Fatal]
  - Mobility decreased [Fatal]
  - Sinusitis [Fatal]
  - Pericarditis [Fatal]
  - Pain in extremity [Fatal]
  - Weight decreased [Fatal]
  - Lupus-like syndrome [Fatal]
  - Seronegative arthritis [Fatal]
  - Muscular weakness [Fatal]
  - Red blood cell sedimentation rate increased [Fatal]
  - Road traffic accident [Fatal]
  - Psoriasis [Fatal]
  - Pyrexia [Fatal]
  - Nasopharyngitis [Fatal]
  - Oedema peripheral [Fatal]
  - Joint stiffness [Fatal]
  - Liver function test increased [Fatal]
  - Weight increased [Fatal]
  - Type 2 diabetes mellitus [Fatal]
  - Urticaria [Fatal]
  - Peripheral swelling [Fatal]
  - Psoriatic arthropathy [Fatal]
  - Swollen joint count increased [Fatal]
  - Joint range of motion decreased [Fatal]
  - Laryngitis [Fatal]
  - Pneumonia [Fatal]
  - Systemic lupus erythematosus [Fatal]
  - Rheumatic fever [Fatal]
  - Muscle injury [Fatal]
  - Sciatica [Fatal]
  - Osteoarthritis [Fatal]
  - Tachycardia [Fatal]
  - Musculoskeletal stiffness [Fatal]
  - Wound [Fatal]
  - Memory impairment [Fatal]
  - Wheezing [Fatal]
  - Rash [Fatal]
  - Lupus vulgaris [Fatal]
  - Synovitis [Fatal]
  - Oedema [Fatal]
  - Wound infection [Fatal]
  - Pain [Fatal]
  - Osteoporosis [Fatal]
  - Prescribed overdose [Fatal]
  - Pemphigus [Fatal]
  - Visual impairment [Fatal]
